FAERS Safety Report 19198799 (Version 1)
Quarter: 2021Q2

REPORT INFORMATION
  Report Type: Spontaneous
  Country: US (occurrence: US)
  Receive Date: 20210429
  Receipt Date: 20210429
  Transmission Date: 20210717
  Serious: No
  Sender: FDA-Public Use
  Company Number: US-ROCHE-2696740

PATIENT
  Age: 36 Year
  Sex: Female
  Weight: 101.7 kg

DRUGS (9)
  1. CEFUROXIME. [Concomitant]
     Active Substance: CEFUROXIME
     Indication: PYREXIA
     Dosage: FOR 14 DAYS ;ONGOING: NO
     Route: 048
     Dates: start: 20200923
  2. TAMOXIFEN [Concomitant]
     Active Substance: TAMOXIFEN
     Dosage: ONGOING:UNKNOWN
     Route: 048
  3. LIDOCAINE AND PRILOCAINE [Concomitant]
     Active Substance: LIDOCAINE\PRILOCAINE
     Dosage: 2.5 2.5% AS REQUIRED ;ONGOING: UNKNOWN
     Route: 061
  4. TRIAMCINOLONE [Concomitant]
     Active Substance: TRIAMCINOLONE
     Dosage: ONGOING: UNKNOWN
     Dates: start: 20200831
  5. TYLENOL [Concomitant]
     Active Substance: ACETAMINOPHEN
     Indication: PYREXIA
     Dosage: ONGOING:UNKNOWN
  6. KADCYLA [Suspect]
     Active Substance: ADO-TRASTUZUMAB EMTANSINE
     Indication: BREAST CANCER
     Dosage: ONGOING:UNKNOWN
     Route: 042
     Dates: start: 20200828
  7. CLINDAMYCIN. [Concomitant]
     Active Substance: CLINDAMYCIN
     Indication: ACNE
     Dosage: ONGOING:UNKNOWN
     Route: 061
     Dates: start: 20200914
  8. DILTIAZEM. [Concomitant]
     Active Substance: DILTIAZEM
     Indication: ANAL FISSURE
     Dosage: ONGOING: NO
     Route: 061
     Dates: start: 202007, end: 20200923
  9. RETIN?A [Concomitant]
     Active Substance: TRETINOIN
     Indication: ACNE
     Dosage: PEA SIZED AMOUNT AT BEDTIME ;ONGOING: UNKNOWN
     Route: 061
     Dates: start: 20200914

REACTIONS (1)
  - Pyrexia [Not Recovered/Not Resolved]

NARRATIVE: CASE EVENT DATE: 20200918
